FAERS Safety Report 8085537-9 (Version None)
Quarter: 2012Q1

REPORT INFORMATION
  Report Type: 
  Country: None (occurrence: None)
  Receive Date: 20120128
  Receipt Date: 20110502
  Transmission Date: 20120608
  Serious: Yes (Other)
  Sender: FDA-Public Use
  Company Number: US-ABBOTT-11P-163-0713313-00

PATIENT
  Sex: Female

DRUGS (6)
  1. SYNTHROID [Concomitant]
     Indication: HYPOTHYROIDISM
  2. HUMIRA [Suspect]
     Indication: CROHN'S DISEASE
     Dates: start: 20101001
  3. PENTASA [Concomitant]
     Indication: CROHN'S DISEASE
  4. PREVACID [Concomitant]
     Indication: GASTROOESOPHAGEAL REFLUX DISEASE
  5. AMLODIPINE [Concomitant]
     Indication: HYPERTENSION
     Dosage: DAILY
  6. GELNIQUE [Concomitant]
     Indication: URINARY INCONTINENCE

REACTIONS (4)
  - CROHN'S DISEASE [None]
  - PSORIASIS [None]
  - MALIGNANT MELANOMA [None]
  - INFECTION [None]
